FAERS Safety Report 6269365-2 (Version None)
Quarter: 2009Q3

REPORT INFORMATION
  Report Type: 
  Country: None (occurrence: None)
  Receive Date: 20090715
  Receipt Date: 20090703
  Transmission Date: 20100115
  Serious: Yes (Hospitalization)
  Sender: FDA-Public Use
  Company Number: FR-MYLANLABS-2009S1011737

PATIENT
  Age: 44 Year
  Sex: Female

DRUGS (7)
  1. ETOPOSIDE [Suspect]
     Indication: THYMOMA
     Route: 042
     Dates: start: 20090423, end: 20090423
  2. CISPLATIN [Suspect]
     Indication: THYMOMA
     Route: 042
     Dates: start: 20090423, end: 20090423
  3. CLOPIXOL [Concomitant]
     Indication: PSYCHOTIC DISORDER
     Route: 030
  4. BROMAZEPAM [Concomitant]
     Indication: ANXIETY
     Route: 048
  5. PARKINANE [Concomitant]
     Route: 048
  6. MEPRONIZINE [Concomitant]
     Route: 048
  7. EFFEXOR [Concomitant]
     Indication: DEPRESSION
     Route: 048

REACTIONS (3)
  - COUGH [None]
  - MUCOSAL INFLAMMATION [None]
  - OROPHARYNGEAL CANDIDIASIS [None]
